FAERS Safety Report 11379369 (Version 1)
Quarter: 2015Q3

REPORT INFORMATION
  Report Type: Spontaneous
  Country: US (occurrence: US)
  Receive Date: 20150813
  Receipt Date: 20150813
  Transmission Date: 20151125
  Serious: No
  Sender: FDA-Public Use
  Company Number: ALCN2015US005086

PATIENT
  Age: 68 Year
  Sex: Female

DRUGS (1)
  1. NAPHCON A [Suspect]
     Active Substance: NAPHAZOLINE HYDROCHLORIDE\PHENIRAMINE MALEATE
     Indication: OCULAR ROSACEA
     Dosage: 1 GTT, Q3H
     Route: 047
     Dates: start: 20150803, end: 20150813

REACTIONS (1)
  - Heart rate increased [Recovered/Resolved]
